FAERS Safety Report 9982323 (Version 1)
Quarter: 2014Q1

REPORT INFORMATION
  Report Type: Report from Study
  Country: US (occurrence: US)
  Receive Date: 20140307
  Receipt Date: 20140307
  Transmission Date: 20141002
  Serious: No
  Sender: FDA-Public Use
  Company Number: US-ABBVIE-13P-163-1178034-00

PATIENT
  Age: 42 Year
  Sex: Male

DRUGS (2)
  1. HUMIRA [Suspect]
     Indication: PSORIASIS
     Dates: start: 2011
  2. LOSARTAN [Concomitant]
     Indication: HYPERTENSION

REACTIONS (4)
  - Oropharyngeal pain [Recovering/Resolving]
  - Balance disorder [Not Recovered/Not Resolved]
  - Malaise [Recovering/Resolving]
  - Joint stiffness [Not Recovered/Not Resolved]
